FAERS Safety Report 10841139 (Version 3)
Quarter: 2015Q1

REPORT INFORMATION
  Report Type: Spontaneous
  Country: US (occurrence: US)
  Receive Date: 20150220
  Receipt Date: 20150320
  Transmission Date: 20150721
  Serious: Yes (Other)
  Sender: FDA-Public Use
  Company Number: US-JNJCP-30000265461

PATIENT
  Sex: Female
  Weight: 68 kg

DRUGS (2)
  1. CLEAN AND CLEAR CONTINUOUS CONTROL ACNE CLEANSER [Suspect]
     Active Substance: BENZOYL PEROXIDE
     Indication: ACNE
     Dosage: IN THE MORNING AND NIGHT
     Route: 061
     Dates: start: 20150205, end: 20150206
  2. CLEAN AND CLEAR ADVANTAGE ACNE SPOT TREATMENT [Suspect]
     Active Substance: SALICYLIC ACID
     Indication: ACNE
     Dosage: DIME SIZE AMOUNT, TWICE DAILY, IN THE MORNING AND NIGHT
     Route: 061
     Dates: start: 20150205, end: 20150205

REACTIONS (2)
  - Dyspnoea [Recovered/Resolved]
  - Application site urticaria [Recovered/Resolved]

NARRATIVE: CASE EVENT DATE: 20150205
